FAERS Safety Report 5819069-2 (Version None)
Quarter: 2008Q3

REPORT INFORMATION
  Report Type: 
  Country: None (occurrence: None)
  Receive Date: 20080721
  Receipt Date: 20080721
  Transmission Date: 20090109
  Serious: Yes (Other)
  Sender: FDA-Public Use
  Company Number: None

PATIENT
  Age: 64 Year
  Sex: Male
  Weight: 127.0072 kg

DRUGS (1)
  1. ACTOS [Suspect]
     Indication: DIABETES MELLITUS
     Dosage: 15MG TABLET DAILY PO
     Route: 048
     Dates: start: 20060601, end: 20080630

REACTIONS (3)
  - FEAR [None]
  - PANIC REACTION [None]
  - VERTIGO [None]
